FAERS Safety Report 7380545-5 (Version None)
Quarter: 2011Q1

REPORT INFORMATION
  Report Type: 
  Country: None (occurrence: None)
  Receive Date: 20110329
  Receipt Date: 20110325
  Transmission Date: 20110831
  Serious: Yes (Death)
  Sender: FDA-Public Use
  Company Number: JP-SANOFI-AVENTIS-2011SA018178

PATIENT
  Age: 69 Year
  Sex: Male

DRUGS (1)
  1. ELPLAT [Suspect]
     Route: 042

REACTIONS (3)
  - DIARRHOEA [None]
  - WHITE BLOOD CELL COUNT DECREASED [None]
  - NEUTROPHIL COUNT DECREASED [None]
